FAERS Safety Report 4448723-2 (Version None)
Quarter: 2004Q3

REPORT INFORMATION
  Report Type: 
  Country: None (occurrence: None)
  Receive Date: 20040909
  Receipt Date: 20040824
  Transmission Date: 20050211
  Serious: Yes (Death, Life-Threatening, Hospitalization)
  Sender: FDA-Public Use
  Company Number: 2004-BP-07196AU

PATIENT
  Age: 67 Year
  Sex: Male

DRUGS (8)
  1. MICARDIS [Suspect]
     Indication: HYPERTENSION
     Dosage: 80 MG (80 MG, 80 MG ORALLY DAILY)
     Route: 048
  2. DIABEX METFORMIN HYDROCHLORIDE) [Suspect]
     Indication: DIABETES MELLITUS NON-INSULIN-DEPENDENT
     Dosage: 1700 MG
     Route: 048
  3. DIAMICRON (GLICLAZIDE) [Suspect]
     Indication: DIABETES MELLITUS NON-INSULIN-DEPENDENT
     Dosage: 160 MG (160 MG ORALLY DAILY)
     Route: 048
  4. NAPROSYN CR [Suspect]
     Dosage: 1000 MG (1000 MG ORALLY DAILY)
     Route: 048
  5. NATRILIX SR [Suspect]
     Dosage: 1.5 MG (1.5 MG ORALLY DAILY)
     Route: 048
  6. NORVASC [Concomitant]
  7. PANADEINE (PANADEINE CO) [Concomitant]
  8. PRAVACHOL [Concomitant]

REACTIONS (2)
  - LACTIC ACIDOSIS [None]
  - RENAL FAILURE ACUTE [None]
